FAERS Safety Report 16410476 (Version 1)
Quarter: 2019Q2

REPORT INFORMATION
  Report Type: Spontaneous
  Country: SE (occurrence: SE)
  Receive Date: 20190610
  Receipt Date: 20190610
  Transmission Date: 20190711
  Serious: Yes (Other)
  Sender: FDA-Public Use
  Company Number: IND-SE-009507513-1905SWE012203

PATIENT
  Sex: Female

DRUGS (10)
  1. ARCOXIA [Suspect]
     Active Substance: ETORICOXIB
     Indication: SPINA BIFIDA
  2. AERIUS (DESLORATADINE) [Concomitant]
     Active Substance: DESLORATADINE
     Dosage: 5 MILLIGRAM, POLLEN SEASON
  3. LIVOCAB [Concomitant]
     Dosage: 50 MICROGRAM/DOSE, POLLEN SEASON
     Route: 045
  4. PREDNISOLONE. [Concomitant]
     Active Substance: PREDNISOLONE
     Dosage: 5 MILLIGRAM, POLLEN SEASON
  5. ARCOXIA [Suspect]
     Active Substance: ETORICOXIB
     Indication: SPONDYLOLISTHESIS
     Dosage: 60 MILLIGRAM, PRN
     Route: 048
  6. OPATANOL [Concomitant]
     Active Substance: OLOPATADINE
     Dosage: UNK, POLLEN SEASON
     Route: 047
  7. LEVAXIN [Concomitant]
     Active Substance: LEVOTHYROXINE SODIUM
     Indication: HYPERTHYROIDISM
     Dosage: 75 MICROGRAM, QD
  8. TAVEGYL [Concomitant]
     Active Substance: CLEMASTINE FUMARATE
     Dosage: 1 MILLIGRAM, POLLEN SEASON
  9. BETOLVEX [Concomitant]
     Active Substance: CYANOCOBALAMIN
     Indication: GASTRECTOMY
     Dosage: 1 MILLIGRAM, QD
  10. NEXIUM [Concomitant]
     Active Substance: ESOMEPRAZOLE MAGNESIUM
     Indication: GASTRECTOMY
     Dosage: 40 MILLIGRAM, QD

REACTIONS (7)
  - Blood calcium increased [Unknown]
  - Product availability issue [Unknown]
  - Product use in unapproved indication [Unknown]
  - Drug effective for unapproved indication [Unknown]
  - Parathyroidectomy [Unknown]
  - Abdominal symptom [Unknown]
  - Nephrolithiasis [Unknown]

NARRATIVE: CASE EVENT DATE: 20180119
